FAERS Safety Report 20024592 (Version 1)
Quarter: 2021Q4

REPORT INFORMATION
  Report Type: Other
  Country: CA (occurrence: CA)
  Receive Date: 20211102
  Receipt Date: 20211102
  Transmission Date: 20220303
  Serious: Yes (Other)
  Sender: FDA-Public Use
  Company Number: CA-APOTEX-2021AP044944

PATIENT
  Age: 24 Year
  Sex: Male

DRUGS (1)
  1. KETOROLAC [Suspect]
     Active Substance: KETOROLAC TROMETHAMINE
     Indication: Product used for unknown indication
     Dosage: 15 MILLIGRAM
     Route: 042

REACTIONS (5)
  - Chest discomfort [Unknown]
  - Eye swelling [Unknown]
  - Lacrimation increased [Unknown]
  - Petechiae [Unknown]
  - Dyspnoea [Unknown]
